FAERS Safety Report 6416321-7 (Version None)
Quarter: 2009Q4

REPORT INFORMATION
  Report Type: 
  Country: None (occurrence: None)
  Receive Date: 20091020
  Receipt Date: 20091007
  Transmission Date: 20100525
  Serious: Yes (Death, Hospitalization)
  Sender: FDA-Public Use
  Company Number: 2009000928

PATIENT
  Age: 81 Year
  Sex: Male
  Weight: 49.4 kg

DRUGS (8)
  1. ERLOTINIB  (ERLOTINIB HCL) [Suspect]
     Indication: NON-SMALL CELL LUNG CANCER
     Dosage: 150 MG (150 MG, QD), ORAL, (100 MG, QD), ORAL, (75 MG, QD), ORAL
     Route: 048
     Dates: start: 20081128, end: 20081208
  2. ERLOTINIB  (ERLOTINIB HCL) [Suspect]
     Indication: NON-SMALL CELL LUNG CANCER
     Dosage: 150 MG (150 MG, QD), ORAL, (100 MG, QD), ORAL, (75 MG, QD), ORAL
     Route: 048
     Dates: start: 20081209, end: 20081216
  3. ERLOTINIB  (ERLOTINIB HCL) [Suspect]
     Indication: NON-SMALL CELL LUNG CANCER
     Dosage: 150 MG (150 MG, QD), ORAL, (100 MG, QD), ORAL, (75 MG, QD), ORAL
     Route: 048
     Dates: start: 20081216, end: 20081225
  4. SELBEX (TERPRENONE) [Concomitant]
  5. ZANTAC 150 [Concomitant]
  6. LASIX [Concomitant]
  7. SLOW-K [Concomitant]
  8. MAGNESIUM OXIDE (MAGNESIUM OXIDE) [Concomitant]

REACTIONS (4)
  - ACUTE RESPIRATORY DISTRESS SYNDROME [None]
  - HERPES ZOSTER [None]
  - INTERSTITIAL LUNG DISEASE [None]
  - PRURITUS [None]
